FAERS Safety Report 8714651 (Version 2)
Quarter: 2013Q1

REPORT INFORMATION
  Report Type: Spontaneous
  Country: BR (occurrence: BR)
  Receive Date: 20120809
  Receipt Date: 20130220
  Transmission Date: 20140127
  Serious: Yes (Death, Other)
  Sender: FDA-Public Use
  Company Number: PHHY2012BR068288

PATIENT
  Sex: Male

DRUGS (11)
  1. GALVUS [Suspect]
     Dosage: 50 MG, BID (1 IN MORNING AND 1 IN NIGHT)
     Route: 048
  2. GLIFAGE XR [Concomitant]
     Indication: DIABETES MELLITUS
     Dosage: 2 DF, AT NIGHT
     Route: 048
  3. ARADOIS H [Concomitant]
     Indication: HYPERTENSION
     Dosage: 1 DF (12.5 MG HCTZ/ 50 MG LOSA), DAILY
     Route: 048
  4. EUTHYROX [Concomitant]
     Indication: THYROID DISORDER
     Dosage: 1 DF, FASTING
     Route: 048
  5. PANTOPRAZOLE [Concomitant]
     Indication: DYSPEPSIA
     Dosage: 20 MG, IN THE MORNING
     Route: 048
  6. MIOCARDIL [Concomitant]
     Indication: NEUROLOGICAL SYMPTOM
     Dosage: 30 MG, QOD
     Route: 048
  7. OCUVITE LUTEIN [Concomitant]
     Indication: MACULAR DEGENERATION
     Dosage: UNK UKN, DAILY
     Route: 048
  8. PAMELOR [Concomitant]
     Indication: DEPRESSION
     Dosage: 10 MG, AT NIGHT
     Route: 048
  9. RIVOTRIL [Concomitant]
     Indication: SLEEP DISORDER
     Dosage: 6 TO 8 DROPS, DAILY
     Route: 048
  10. TIMOLOL [Concomitant]
     Indication: GLAUCOMA
     Dosage: 1 DRP IN EACH EYE, AT NIGHT
  11. LASIX [Concomitant]
     Indication: FLUID RETENTION
     Dosage: 1 DF, BIW
     Route: 048

REACTIONS (4)
  - Multi-organ failure [Fatal]
  - Acute myeloid leukaemia [Fatal]
  - Dementia Alzheimer^s type [Recovering/Resolving]
  - Parkinson^s disease [Recovering/Resolving]
